FAERS Safety Report 10066188 (Version 1)
Quarter: 2014Q2

REPORT INFORMATION
  Report Type: Spontaneous
  Country: US (occurrence: US)
  Receive Date: 20140408
  Receipt Date: 20140408
  Transmission Date: 20141212
  Serious: Yes (Life-Threatening, Hospitalization)
  Sender: FDA-Public Use
  Company Number: US-BRISTOL-MYERS SQUIBB COMPANY-20571170

PATIENT
  Sex: Female

DRUGS (1)
  1. ETOPOPHOS [Suspect]

REACTIONS (2)
  - Blood bilirubin increased [Unknown]
  - Maternal exposure during pregnancy [Unknown]
